FAERS Safety Report 7688536-1 (Version None)
Quarter: 2011Q3

REPORT INFORMATION
  Report Type: 
  Country: None (occurrence: None)
  Receive Date: 20110817
  Receipt Date: 20110817
  Transmission Date: 20111222
  Serious: Yes (Other)
  Sender: FDA-Public Use
  Company Number: None

PATIENT
  Sex: Male
  Weight: 20.5 kg

DRUGS (1)
  1. CHLORAPREP [Suspect]

REACTIONS (6)
  - APPLICATION SITE ERYTHEMA [None]
  - APPLICATION SITE SWELLING [None]
  - EXCORIATION [None]
  - APPLICATION SITE RASH [None]
  - APPLICATION SITE VESICLES [None]
  - APPLICATION SITE PRURITUS [None]
